FAERS Safety Report 9799005 (Version 1)
Quarter: 2013Q4

REPORT INFORMATION
  Report Type: Spontaneous
  Country: GB (occurrence: None)
  Receive Date: 20131231
  Receipt Date: 20131231
  Transmission Date: 20140711
  Serious: Yes (Other)
  Sender: FDA-Public Use
  Company Number: AUR-APL-2013-10818

PATIENT
  Sex: Male
  Weight: 171 kg

DRUGS (4)
  1. CLOPIDOGREL (CLOPIDOGREL) [Suspect]
     Indication: PRODUCT USED FOR UNKNOWN INDICATION
     Dates: start: 20131010
  2. AMLODIPINE (AMLODIPINE) [Concomitant]
  3. ASPIRIN (ACEYTLSASLICYLIC AICD) [Concomitant]
  4. ATORVASTATIN (ATORVASTATIN) [Concomitant]

REACTIONS (4)
  - Rash erythematous [None]
  - Pruritus [None]
  - Swollen tongue [None]
  - Urticaria [None]
